FAERS Safety Report 5750275-1 (Version None)
Quarter: 2008Q2

REPORT INFORMATION
  Report Type: 
  Country: None (occurrence: None)
  Receive Date: 20080522
  Receipt Date: 20080522
  Transmission Date: 20081010
  Serious: Yes (Hospitalization)
  Sender: FDA-Public Use
  Company Number: None

PATIENT
  Age: 75 Year
  Sex: Male
  Weight: 75.2517 kg

DRUGS (15)
  1. ABRAXANE [Suspect]
     Indication: NON-SMALL CELL LUNG CANCER
     Dosage: 78MG OVER 30MIN QWK IVPB
     Route: 040
     Dates: start: 20080414, end: 20080519
  2. CARBOPLATIN [Suspect]
     Dosage: 115MG
     Dates: start: 20080414, end: 20080519
  3. PERCOCET [Concomitant]
  4. ALLOPURINOL [Concomitant]
  5. ASPIRIN [Concomitant]
  6. CLARITIN [Concomitant]
  7. DIGOXIN [Concomitant]
  8. LOPRESSOR [Concomitant]
  9. ULTRAM [Concomitant]
  10. ZESTRIL [Concomitant]
  11. ZOCOR [Concomitant]
  12. LEXAPRO [Concomitant]
  13. CARDIZEM [Concomitant]
  14. REGLAN [Concomitant]
  15. EXFORGE [Concomitant]

REACTIONS (2)
  - ASTHENIA [None]
  - HEART RATE INCREASED [None]
